FAERS Safety Report 25407574 (Version 1)
Quarter: 2025Q2

REPORT INFORMATION
  Report Type: Spontaneous
  Country: US (occurrence: None)
  Receive Date: 20250605
  Receipt Date: 20250605
  Transmission Date: 20250716
  Serious: Yes (Other)
  Sender: FDA-CTU
  Company Number: None

PATIENT
  Age: 61 Year
  Sex: Female
  Weight: 73.35 kg

DRUGS (6)
  1. ACETAMINOPHEN [Suspect]
     Active Substance: ACETAMINOPHEN
     Indication: Pyrexia
     Dates: start: 20250605, end: 20250605
  2. ACETAMINOPHEN [Suspect]
     Active Substance: ACETAMINOPHEN
     Indication: Pain
  3. 3000 mg Biotin [Concomitant]
  4. VITAMINS [Concomitant]
     Active Substance: VITAMINS
  5. 2200mg omega-3 fish oil [Concomitant]
  6. 100mg niacin [Concomitant]

REACTIONS (2)
  - Eye swelling [None]
  - Urticaria [None]

NARRATIVE: CASE EVENT DATE: 20250605
